FAERS Safety Report 15515411 (Version 3)
Quarter: 2019Q2

REPORT INFORMATION
  Report Type: Spontaneous
  Country: US (occurrence: US)
  Receive Date: 20181017
  Receipt Date: 20190530
  Transmission Date: 20190711
  Serious: Yes (Other)
  Sender: FDA-Public Use
  Company Number: US-ASTRAZENECA-2018SF31537

PATIENT
  Age: 20440 Day
  Sex: Female
  Weight: 86.2 kg

DRUGS (23)
  1. OMEPRAZOLE. [Suspect]
     Active Substance: OMEPRAZOLE
     Indication: GASTROOESOPHAGEAL REFLUX DISEASE
     Route: 065
     Dates: start: 201508, end: 201607
  2. SINGULAIR [Concomitant]
     Active Substance: MONTELUKAST SODIUM
  3. HYDROCODONE [Concomitant]
     Active Substance: HYDROCODONE
  4. ZINC. [Concomitant]
     Active Substance: ZINC
  5. NITROSTAT [Concomitant]
     Active Substance: NITROGLYCERIN
  6. AMLODIPINE [Concomitant]
     Active Substance: AMLODIPINE BESYLATE
  7. LYRICA [Concomitant]
     Active Substance: PREGABALIN
  8. TYLENOL [Concomitant]
     Active Substance: ACETAMINOPHEN
  9. NEXIUM [Suspect]
     Active Substance: ESOMEPRAZOLE MAGNESIUM
     Indication: GASTROOESOPHAGEAL REFLUX DISEASE
     Route: 048
     Dates: start: 201103, end: 201212
  10. DIAZEPAM. [Concomitant]
     Active Substance: DIAZEPAM
  11. NEXIUM [Suspect]
     Active Substance: ESOMEPRAZOLE MAGNESIUM
     Indication: GASTROOESOPHAGEAL REFLUX DISEASE
     Route: 048
     Dates: start: 2007, end: 2014
  12. OMEPRAZOLE. [Suspect]
     Active Substance: OMEPRAZOLE
     Indication: GASTROOESOPHAGEAL REFLUX DISEASE
     Dosage: 20.0MG UNKNOWN
     Route: 065
     Dates: start: 20150814
  13. GABAPENTIN. [Concomitant]
     Active Substance: GABAPENTIN
  14. PANTOPRAZOLE [Suspect]
     Active Substance: PANTOPRAZOLE
     Indication: GASTROOESOPHAGEAL REFLUX DISEASE
     Route: 065
     Dates: start: 201507
  15. IMITREX [Concomitant]
     Active Substance: SUMATRIPTAN SUCCINATE
  16. ASPIRIN. [Concomitant]
     Active Substance: ASPIRIN
  17. LEVOTHYROXINE. [Concomitant]
     Active Substance: LEVOTHYROXINE
  18. NEXIUM [Suspect]
     Active Substance: ESOMEPRAZOLE MAGNESIUM
     Indication: GASTROOESOPHAGEAL REFLUX DISEASE
     Route: 048
     Dates: start: 200704
  19. ATORVASTATIN [Concomitant]
     Active Substance: ATORVASTATIN
  20. NEXIUM [Suspect]
     Active Substance: ESOMEPRAZOLE MAGNESIUM
     Indication: GASTROOESOPHAGEAL REFLUX DISEASE
     Dosage: 40.0MG UNKNOWN
     Route: 048
     Dates: start: 20070416
  21. LOSARTAN. [Concomitant]
     Active Substance: LOSARTAN
  22. FLUTICASONE. [Concomitant]
     Active Substance: FLUTICASONE
  23. VITAMIN B1 [Concomitant]
     Active Substance: THIAMINE HYDROCHLORIDE

REACTIONS (3)
  - Chronic kidney disease [Not Recovered/Not Resolved]
  - Hyperparathyroidism secondary [Unknown]
  - Renal failure [Unknown]

NARRATIVE: CASE EVENT DATE: 20160616
